FAERS Safety Report 7403455-3 (Version None)
Quarter: 2011Q2

REPORT INFORMATION
  Report Type: 
  Country: None (occurrence: None)
  Receive Date: 20110408
  Receipt Date: 20110330
  Transmission Date: 20111010
  Serious: Yes (Other)
  Sender: FDA-Public Use
  Company Number: B0702775A

PATIENT
  Sex: Female
  Weight: 65 kg

DRUGS (4)
  1. CELSENTRI [Suspect]
     Indication: HIV INFECTION
     Dosage: 300MG TWICE PER DAY
     Route: 048
     Dates: start: 20101118, end: 20110312
  2. EMTRIVA [Concomitant]
     Indication: HIV INFECTION
     Route: 048
     Dates: start: 20100101
  3. ISENTRESS [Concomitant]
     Indication: HIV INFECTION
     Dosage: 400MG TWICE PER DAY
     Route: 048
     Dates: start: 20100101
  4. SEROPRAM [Suspect]
     Dosage: 20MG PER DAY
     Route: 048
     Dates: start: 20080101

REACTIONS (13)
  - PALLOR [None]
  - CEREBRAL HYPOPERFUSION [None]
  - LOSS OF CONSCIOUSNESS [None]
  - DRUG INTERACTION [None]
  - DELIRIUM [None]
  - CARDIOVASCULAR INSUFFICIENCY [None]
  - SYNCOPE [None]
  - FALL [None]
  - CONFUSIONAL STATE [None]
  - INJURY [None]
  - VERTIGO [None]
  - CONVERSION DISORDER [None]
  - AGITATION [None]
